FAERS Safety Report 4277868-5 (Version None)
Quarter: 2004Q1

REPORT INFORMATION
  Report Type: 
  Country: None (occurrence: None)
  Receive Date: 20040121
  Receipt Date: 20040108
  Transmission Date: 20041129
  Serious: Yes (Other)
  Sender: FDA-Public Use
  Company Number: 2003034279

PATIENT
  Age: 62 Year
  Sex: Female

DRUGS (5)
  1. ZELDOX (CAPSULES) (ZIPRASIDONE) [Suspect]
     Indication: SCHIZOPHRENIA
     Dosage: 40 MG (BID), ORAL
     Route: 048
     Dates: start: 20030516, end: 20030526
  2. AMITRIPTYLINE HYDROCHLORIDE [Concomitant]
  3. PERPHENAZINE DECANOATE (PERPHENAZINE DECANOATE) [Concomitant]
  4. SIMVASTATIN [Concomitant]
  5. GLIMEPIRIDE [Concomitant]

REACTIONS (5)
  - ANXIETY [None]
  - DYSPHAGIA [None]
  - DYSPNOEA [None]
  - INITIAL INSOMNIA [None]
  - NAUSEA [None]
